FAERS Safety Report 21339300 (Version 2)
Quarter: 2022Q3

REPORT INFORMATION
  Report Type: Spontaneous
  Country: US (occurrence: US)
  Receive Date: 20220915
  Receipt Date: 20220919
  Transmission Date: 20221026
  Serious: No
  Sender: FDA-Public Use
  Company Number: US-SANOFI-01269161

PATIENT
  Sex: Male

DRUGS (1)
  1. DUPIXENT [Suspect]
     Active Substance: DUPILUMAB
     Indication: Dermatitis atopic
     Dosage: UNK UNK, QOW

REACTIONS (5)
  - Rebound atopic dermatitis [Unknown]
  - Discomfort [Unknown]
  - Skin irritation [Unknown]
  - Pruritus [Unknown]
  - Inappropriate schedule of product administration [Unknown]
